FAERS Safety Report 11880449 (Version 4)
Quarter: 2016Q1

REPORT INFORMATION
  Report Type: Spontaneous
  Country: US (occurrence: US)
  Receive Date: 20151230
  Receipt Date: 20160126
  Transmission Date: 20160526
  Serious: Yes (Other)
  Sender: FDA-Public Use
  Company Number: US-MEDTRONIC-1046012

PATIENT
  Age: 61 Year
  Sex: Male

DRUGS (2)
  1. COMPOUNDED BACLOFEN INTRATHECAL [Suspect]
     Active Substance: BACLOFEN
     Indication: MUSCLE SPASTICITY
     Route: 037
  2. MORPHINE SULFATE INJECTION [Suspect]
     Active Substance: MORPHINE SULFATE
     Route: 037

REACTIONS (4)
  - Sensation of foreign body [Unknown]
  - Feeling of body temperature change [Unknown]
  - Hot flush [Unknown]
  - Urinary tract infection [None]

NARRATIVE: CASE EVENT DATE: 201510
